FAERS Safety Report 18497135 (Version 2)
Quarter: 2020Q4

REPORT INFORMATION
  Report Type: Report from Study
  Country: US (occurrence: US)
  Receive Date: 20201112
  Receipt Date: 20201126
  Transmission Date: 20210114
  Serious: No
  Sender: FDA-Public Use
  Company Number: US-DSJP-DSU-2020-134408

PATIENT
  Age: 38 Year
  Sex: Male

DRUGS (2)
  1. PEXIDARTINIB [Suspect]
     Active Substance: PEXIDARTINIB
     Dosage: 400 MG, BID
     Route: 048
     Dates: start: 20201102, end: 20201123
  2. PEXIDARTINIB [Suspect]
     Active Substance: PEXIDARTINIB
     Indication: SYNOVITIS
     Dosage: 400 MG, BID
     Route: 048
     Dates: start: 20201102

REACTIONS (4)
  - Joint swelling [Recovered/Resolved]
  - Enzyme level increased [Recovered/Resolved]
  - Nausea [Recovered/Resolved]
  - Pruritus [Recovered/Resolved]

NARRATIVE: CASE EVENT DATE: 20201103
